FAERS Safety Report 11774490 (Version 1)
Quarter: 2015Q4

REPORT INFORMATION
  Report Type: Report from Study
  Country: IT (occurrence: IT)
  Receive Date: 20151124
  Receipt Date: 20151124
  Transmission Date: 20160304
  Serious: Yes (Hospitalization)
  Sender: FDA-Public Use
  Company Number: IT-BAXALTA-2015BLT002758

PATIENT
  Age: 28 Year
  Sex: Male
  Weight: 60 kg

DRUGS (2)
  1. ADVATE [Suspect]
     Active Substance: ANTIHEMOPHILIC FACTOR, HUMAN RECOMBINANT
     Indication: FACTOR VIII DEFICIENCY
     Dosage: 3000 IU, ONCE
     Route: 042
     Dates: start: 201411, end: 201411
  2. ADVATE [Suspect]
     Active Substance: ANTIHEMOPHILIC FACTOR, HUMAN RECOMBINANT
     Indication: HAEMORRHAGE PROPHYLAXIS
     Dosage: 2000 IU, 1X A DAY
     Route: 042
     Dates: start: 20140813, end: 20141121

REACTIONS (2)
  - Device deposit issue [Recovered/Resolved with Sequelae]
  - Myositis ossificans [Recovered/Resolved with Sequelae]

NARRATIVE: CASE EVENT DATE: 20141114
